FAERS Safety Report 6726129-0 (Version None)
Quarter: 2010Q2

REPORT INFORMATION
  Report Type: 
  Country: None (occurrence: None)
  Receive Date: 20100512
  Receipt Date: 20100429
  Transmission Date: 20101027
  Serious: Yes (Other)
  Sender: FDA-Public Use
  Company Number: 2010AP000798

PATIENT
  Age: 7 Year
  Sex: Male

DRUGS (17)
  1. ONDANSETRON HYDROCHLORIDE [Suspect]
     Indication: PROPHYLAXIS OF NAUSEA AND VOMITING
     Dosage: 4 MG; PO; Q8H
     Route: 048
  2. GRANISETRON HYDROCHLORIDE INJECTION (GRANISETRON HYDROCHLORIDE) [Suspect]
     Indication: PROPHYLAXIS OF NAUSEA AND VOMITING
     Dosage: 480 UG;IV;Q12H
     Route: 042
  3. ONDANSETRON [Concomitant]
  4. GRANISETRON (GRANISETRON) [Concomitant]
  5. HYDROMORPHONE HCL [Concomitant]
  6. HYDROXINE (HYDROXIZINE) [Concomitant]
  7. DIMENHYDRINATE [Concomitant]
  8. LORAZEPAM [Concomitant]
  9. RANITIDINE [Concomitant]
  10. BISACODYL (BISACODYL) [Concomitant]
  11. DOCUSATE (DOCUSATE) [Concomitant]
  12. SULFONAMIDES (SULFONAMIDES) [Concomitant]
  13. MORPHINE [Concomitant]
  14. VANCOMYCIN [Concomitant]
  15. DEXAMETHASONE [Concomitant]
  16. CEFUROXIME [Concomitant]
  17. HYDROMORPHONE HCL [Concomitant]

REACTIONS (1)
  - DYSKINESIA [None]
